FAERS Safety Report 23938895 (Version 1)
Quarter: 2024Q2

REPORT INFORMATION
  Report Type: Spontaneous
  Country: IN (occurrence: IN)
  Receive Date: 20240604
  Receipt Date: 20240604
  Transmission Date: 20240715
  Serious: Yes (Hospitalization)
  Sender: FDA-Public Use
  Company Number: IN-MYLANLABS-2024M1050025

PATIENT
  Age: 35 Year
  Sex: Male

DRUGS (1)
  1. METHOTREXATE [Suspect]
     Active Substance: METHOTREXATE
     Indication: Psoriasis
     Dosage: 15 MILLIGRAM, QD
     Route: 065

REACTIONS (8)
  - Hyperbilirubinaemia [Unknown]
  - Skin erosion [Unknown]
  - Toxicity to various agents [Unknown]
  - Pancytopenia [Unknown]
  - Stomatitis [Unknown]
  - Cellulitis [Unknown]
  - Blood albumin decreased [Unknown]
  - Overdose [Unknown]
